FAERS Safety Report 21445765 (Version 1)
Quarter: 2022Q4

REPORT INFORMATION
  Report Type: Spontaneous
  Country: JP (occurrence: JP)
  Receive Date: 20221012
  Receipt Date: 20221012
  Transmission Date: 20230113
  Serious: Yes (Other)
  Sender: FDA-Public Use
  Company Number: JP-ABBVIE-4151441

PATIENT

DRUGS (1)
  1. GLECAPREVIR\PIBRENTASVIR [Suspect]
     Active Substance: GLECAPREVIR\PIBRENTASVIR
     Indication: Hepatitis C
     Route: 048

REACTIONS (13)
  - Adverse event [Unknown]
  - Pruritus [Unknown]
  - Blood creatinine increased [Unknown]
  - Renal disorder [Unknown]
  - Insomnia [Unknown]
  - Hyperbilirubinaemia [Unknown]
  - Headache [Unknown]
  - Blood bilirubin increased [Unknown]
  - Haemoglobin decreased [Unknown]
  - Nausea [Unknown]
  - Pyrexia [Unknown]
  - Malaise [Unknown]
  - Rash [Unknown]
